FAERS Safety Report 8601992-7 (Version None)
Quarter: 2012Q3

REPORT INFORMATION
  Report Type: 
  Country: None (occurrence: None)
  Receive Date: 20120817
  Receipt Date: 20120627
  Transmission Date: 20120928
  Serious: Yes (Other)
  Sender: FDA-Public Use
  Company Number: US-BRISTOL-MYERS SQUIBB COMPANY-16718520

PATIENT
  Age: 44 Year
  Sex: Male
  Weight: 69 kg

DRUGS (1)
  1. SPRYCEL [Suspect]
     Indication: CHRONIC MYELOID LEUKAEMIA
     Dosage: STARTED ON 2006 OR 2009

REACTIONS (1)
  - NEOPLASM MALIGNANT [None]
